FAERS Safety Report 7098973-4 (Version None)
Quarter: 2010Q4

REPORT INFORMATION
  Report Type: 
  Country: None (occurrence: None)
  Receive Date: 20101112
  Receipt Date: 20101109
  Transmission Date: 20110411
  Serious: Yes (Other)
  Sender: FDA-Public Use
  Company Number: US-BAYER-201036824NA

PATIENT
  Age: 18 Year
  Sex: Female
  Weight: 90 kg

DRUGS (2)
  1. MIRENA [Suspect]
     Indication: CONTRACEPTION
     Route: 015
     Dates: start: 20100827, end: 20101013
  2. LIDOCAINE 1% [Concomitant]

REACTIONS (3)
  - ABDOMINAL PAIN LOWER [None]
  - DEVICE DISLOCATION [None]
  - UTERINE PERFORATION [None]
